FAERS Safety Report 7775333-1 (Version None)
Quarter: 2011Q3

REPORT INFORMATION
  Report Type: 
  Country: None (occurrence: None)
  Receive Date: 20110921
  Receipt Date: 20110908
  Transmission Date: 20111222
  Serious: Yes (Other)
  Sender: FDA-Public Use
  Company Number: USA/USA/11/0021234

PATIENT
  Age: 67 Year
  Sex: Male

DRUGS (1)
  1. SIMVASTATIN [Suspect]
     Indication: PRODUCT USED FOR UNKNOWN INDICATION
     Dosage: 20 MG,

REACTIONS (8)
  - POLYCYTHAEMIA [None]
  - OXYGEN SATURATION DECREASED [None]
  - BLOOD CHOLESTEROL INCREASED [None]
  - SOMNOLENCE [None]
  - LOW DENSITY LIPOPROTEIN INCREASED [None]
  - FATIGUE [None]
  - SLEEP APNOEA SYNDROME [None]
  - PRODUCT SUBSTITUTION ISSUE [None]
